FAERS Safety Report 6757663-5 (Version None)
Quarter: 2010Q2

REPORT INFORMATION
  Report Type: 
  Country: None (occurrence: None)
  Receive Date: 20100607
  Receipt Date: 20100601
  Transmission Date: 20101027
  Serious: Yes (Other)
  Sender: FDA-Public Use
  Company Number: US-JNJFOC-20090904882

PATIENT
  Sex: Female

DRUGS (6)
  1. LEVAQUIN [Suspect]
     Indication: UPPER RESPIRATORY TRACT INFECTION
     Route: 048
  2. LEVAQUIN [Suspect]
     Indication: ASTHMA
     Route: 048
  3. LEVAQUIN [Suspect]
     Indication: BRONCHITIS
     Route: 048
  4. LEVAQUIN [Suspect]
     Indication: PNEUMONIA
     Route: 048
  5. LEVAQUIN [Suspect]
     Indication: BACTERIAL INFECTION
     Route: 048
  6. CORTICOSTEROID UNSPECIFIED [Suspect]
     Indication: DRUG USE FOR UNKNOWN INDICATION

REACTIONS (3)
  - LIGAMENT RUPTURE [None]
  - TENDON INJURY [None]
  - TENDON RUPTURE [None]
